FAERS Safety Report 12098799 (Version 1)
Quarter: 2016Q1

REPORT INFORMATION
  Report Type: Spontaneous
  Country: US (occurrence: US)
  Receive Date: 20160222
  Receipt Date: 20160222
  Transmission Date: 20160526
  Serious: No
  Sender: FDA-Public Use
  Company Number: PHEH2016US003805

PATIENT
  Sex: Female

DRUGS (2)
  1. EXELON PATCH [Suspect]
     Active Substance: RIVASTIGMINE
     Indication: PRODUCT USED FOR UNKNOWN INDICATION
     Dosage: 4.6 MG/24 HOURS, 9 MG RIVASTIGMINE BASE (PATCH 5 (CM2))
     Route: 062
  2. EXELON [Suspect]
     Active Substance: RIVASTIGMINE TARTRATE
     Indication: PRODUCT USED FOR UNKNOWN INDICATION
     Dosage: 1.5 MG, UNK
     Route: 065

REACTIONS (7)
  - Tremor [Unknown]
  - Rash [Unknown]
  - Vomiting [Unknown]
  - Application site irritation [Unknown]
  - Incorrect drug administration duration [Unknown]
  - Head discomfort [Unknown]
  - Dizziness [Unknown]
